FAERS Safety Report 21332071 (Version 3)
Quarter: 2023Q2

REPORT INFORMATION
  Report Type: Spontaneous
  Country: US (occurrence: US)
  Receive Date: 20220914
  Receipt Date: 20230606
  Transmission Date: 20230722
  Serious: No
  Sender: FDA-Public Use
  Company Number: US-BRISTOL-MYERS SQUIBB COMPANY-2022-038530

PATIENT
  Age: 77 Year
  Sex: Male

DRUGS (3)
  1. REVLIMID [Suspect]
     Active Substance: LENALIDOMIDE
     Indication: Plasma cell myeloma
     Dosage: TAKE 1 CASULE BY MOUTH EVERY DAY, ON DAYS 1-21 OF A 28 DAY CYCLE
     Route: 048
  2. REVLIMID [Suspect]
     Active Substance: LENALIDOMIDE
     Route: 048
     Dates: start: 20210118
  3. REVLIMID [Suspect]
     Active Substance: LENALIDOMIDE
     Dosage: DOSE: TAKE 1 CAPSULE (5MG TOTAL) BY MOUTH EVERY DAY FOR 7 DAYS ON, 7 DAYS OFF OF A 28 DAY CYCLE
     Route: 048

REACTIONS (3)
  - Product dose omission issue [Unknown]
  - Nasopharyngitis [Recovering/Resolving]
  - Off label use [Unknown]
